FAERS Safety Report 7247048 (Version 21)
Quarter: 2013Q3

REPORT INFORMATION
  Report Type: Spontaneous
  Country: US (occurrence: US)
  Receive Date: 20100115
  Receipt Date: 20130801
  Transmission Date: 20140515
  Serious: Yes (Death, Hospitalization, Other)
  Sender: FDA-Public Use
  Company Number: PHEH2010US00483

PATIENT
  Age: 61 Year
  Sex: Female

DRUGS (32)
  1. ZOMETA [Suspect]
     Dosage: 4 MG
     Route: 042
  2. COUMADIN [Concomitant]
     Dosage: 1.25 MG, QD
     Route: 048
  3. MORPHINE [Concomitant]
  4. METFORMIN [Concomitant]
  5. LOPRESSOR [Concomitant]
  6. ASPIRIN ^BAYER^ [Concomitant]
  7. AMBIEN [Concomitant]
  8. DEMEROL [Concomitant]
  9. FEMARA [Concomitant]
     Dosage: 2.5 MG, DAILY
  10. PERCOCET [Concomitant]
  11. FULVESTRANT [Concomitant]
  12. ATIVAN [Concomitant]
  13. IBUPROFEN [Concomitant]
  14. LANTUS [Concomitant]
  15. LISINOPRIL [Concomitant]
  16. ONDANSETRON [Concomitant]
  17. REGLAN [Concomitant]
  18. HYDROCORTISONE [Concomitant]
  19. FASLODEX [Concomitant]
  20. FISH OIL [Concomitant]
  21. PRILOSEC [Concomitant]
     Dosage: 20 MG, QD
  22. MINOCYCLINE [Concomitant]
     Dosage: 100 MG, BID
     Route: 048
  23. WARFARIN [Concomitant]
     Dosage: 2.5 MG, QD
  24. LASIX [Concomitant]
     Dosage: 20 MG, PRN
     Route: 048
  25. LOVENOX [Concomitant]
     Dosage: 60 MG, BID
     Route: 048
  26. NEURONTIN [Concomitant]
     Dosage: 1 DF, BID
     Route: 048
  27. ROSIGLITAZONE MALEATE [Concomitant]
     Dosage: 4 MG, QD
     Route: 048
  28. REMERON [Concomitant]
  29. CAPECITABINE [Concomitant]
  30. PREDNISONE [Concomitant]
  31. JANUVIA [Concomitant]
  32. DEXA [Concomitant]

REACTIONS (117)
  - Tooth loss [Unknown]
  - Primary sequestrum [Unknown]
  - Upper respiratory tract infection [Unknown]
  - Kyphosis [Unknown]
  - Wound infection [Unknown]
  - Emphysema [Unknown]
  - Muscle necrosis [Unknown]
  - Diabetic nephropathy [Unknown]
  - Cough [Unknown]
  - Oropharyngeal pain [Unknown]
  - Tongue biting [Unknown]
  - Dysuria [Unknown]
  - Lordosis [Unknown]
  - Vestibular disorder [Unknown]
  - Cat scratch disease [Unknown]
  - Tricuspid valve incompetence [Unknown]
  - Spondylolisthesis [Unknown]
  - Pseudomeningocele [Unknown]
  - Hepatic steatosis [Unknown]
  - Bone pain [Unknown]
  - Muscle atrophy [Unknown]
  - Vascular calcification [Unknown]
  - Lymphadenopathy [Unknown]
  - Death [Fatal]
  - Back pain [Not Recovered/Not Resolved]
  - Osteonecrosis of jaw [Unknown]
  - General physical health deterioration [Unknown]
  - Dysphagia [Unknown]
  - Pain [Unknown]
  - Anxiety [Unknown]
  - Impaired healing [Unknown]
  - Decreased interest [Unknown]
  - Osteomyelitis [Unknown]
  - Toothache [Unknown]
  - Diabetes mellitus [Unknown]
  - Hypertension [Unknown]
  - Neoplasm progression [Unknown]
  - Metastases to lung [Unknown]
  - Neoplasm malignant [Unknown]
  - Metastases to bone [Unknown]
  - Pulmonary mass [Unknown]
  - Metastases to liver [Unknown]
  - Subcutaneous abscess [Unknown]
  - Axillary mass [Unknown]
  - Spinal osteoarthritis [Unknown]
  - Compression fracture [Unknown]
  - Prothrombin time prolonged [Unknown]
  - Abscess [Unknown]
  - Haematoma [Unknown]
  - Oral disorder [Unknown]
  - Pathological fracture [Unknown]
  - Intervertebral disc degeneration [Unknown]
  - Intervertebral disc space narrowing [Unknown]
  - Intervertebral disc protrusion [Unknown]
  - Musculoskeletal discomfort [Unknown]
  - Cardiac failure congestive [Unknown]
  - Chest pain [Unknown]
  - Mitral valve incompetence [Unknown]
  - Aortic valve incompetence [Unknown]
  - Hypoxia [Unknown]
  - Dyspnoea [Unknown]
  - Diastolic dysfunction [Unknown]
  - Pleural effusion [Unknown]
  - Atelectasis [Unknown]
  - Aortic calcification [Unknown]
  - Aortic arteriosclerosis [Unknown]
  - Leukopenia [Unknown]
  - Pulmonary embolism [Unknown]
  - Cystitis [Unknown]
  - Pharyngitis [Unknown]
  - Pulmonary oedema [Unknown]
  - Vocal cord disorder [Unknown]
  - Dysphonia [Unknown]
  - Vocal cord paralysis [Unknown]
  - Uterine atrophy [Unknown]
  - Deafness [Unknown]
  - Anaemia [Unknown]
  - Hypokalaemia [Unknown]
  - Confusional state [Unknown]
  - Hypoaesthesia [Unknown]
  - Diarrhoea [Unknown]
  - Gait disturbance [Unknown]
  - Insomnia [Unknown]
  - Dizziness [Unknown]
  - Sinus disorder [Unknown]
  - Constipation [Unknown]
  - Polyuria [Unknown]
  - Breast prosthesis user [Unknown]
  - Pneumonia [Unknown]
  - Vision blurred [Unknown]
  - Bone lesion [Unknown]
  - Wound [Unknown]
  - Nausea [Unknown]
  - Vomiting [Unknown]
  - Depression [Unknown]
  - Seroma [Unknown]
  - Sleep apnoea syndrome [Unknown]
  - Amnesia [Unknown]
  - Thrombosis [Unknown]
  - Facet joint syndrome [Unknown]
  - Spinal column stenosis [Unknown]
  - Hypertrophy [Unknown]
  - Scoliosis [Unknown]
  - Arthralgia [Unknown]
  - Paraesthesia [Unknown]
  - Fatigue [Unknown]
  - Restlessness [Unknown]
  - Pyrexia [Unknown]
  - Joint swelling [Unknown]
  - Spinal fracture [Unknown]
  - Adrenal disorder [Unknown]
  - Fall [Unknown]
  - Skin ulcer [Unknown]
  - Tachycardia [Unknown]
  - Erythema [Unknown]
  - Oedema [Unknown]
  - Infection [Unknown]
